FAERS Safety Report 10232745 (Version 2)
Quarter: 2014Q2

REPORT INFORMATION
  Report Type: Spontaneous
  Country: FR (occurrence: FR)
  Receive Date: 20140612
  Receipt Date: 20140616
  Transmission Date: 20141212
  Serious: Yes (Hospitalization)
  Sender: FDA-Public Use
  Company Number: FR-PFIZER INC-2014160374

PATIENT
  Age: 51 Year
  Sex: Male

DRUGS (14)
  1. EUPANTOL [Suspect]
     Dosage: 40 MG, DAILY
     Route: 048
     Dates: end: 20121216
  2. BISOPROLOL FUMARATE [Suspect]
     Dosage: 1 DF, DAILY
     Route: 048
     Dates: end: 20121216
  3. PROPOFOL [Suspect]
     Indication: ANAESTHESIA
     Dosage: UNK
     Route: 042
     Dates: start: 20121217, end: 20121217
  4. HEPARINE SODIQUE PANPHARMA [Suspect]
     Indication: EXTRACORPOREAL CIRCULATION
     Dosage: 21000 IU, UNK
     Route: 042
     Dates: start: 20121217, end: 20121217
  5. ALPRAZOLAM [Suspect]
     Dosage: 1 MG, DAILY
     Route: 048
     Dates: start: 20121216, end: 20121217
  6. EXACYL [Suspect]
     Dosage: UNK
     Route: 042
     Dates: start: 20121217, end: 20121217
  7. SUFENTANIL [Suspect]
     Indication: ANAESTHESIA
     Dosage: UNK
     Route: 042
     Dates: start: 20121217, end: 20121217
  8. NIMBEX [Suspect]
     Indication: ANAESTHESIA
     Dosage: UNK
     Route: 042
     Dates: start: 20121217, end: 20121217
  9. KETAMINE ^PANPHARMA^ [Suspect]
     Indication: ANAESTHESIA
     Dosage: UNK
     Route: 042
     Dates: start: 20121217, end: 20121217
  10. ZINNAT [Suspect]
     Indication: PROPHYLAXIS
     Dosage: UNK
     Route: 042
     Dates: start: 20121217, end: 20121217
  11. ZINNAT [Suspect]
     Indication: ANAESTHESIA
  12. PROTAMINE SULFATE [Suspect]
     Indication: ANAESTHESIA
     Dosage: UNK
     Route: 042
     Dates: start: 20121217, end: 20121217
  13. ATARAX [Suspect]
     Dosage: 50 MG, DAILY
     Route: 048
     Dates: start: 20121216, end: 20121217
  14. CRESTOR [Concomitant]
     Dosage: UNK

REACTIONS (1)
  - Post procedural haemorrhage [Recovered/Resolved]
